FAERS Safety Report 7516766-8 (Version None)
Quarter: 2011Q2

REPORT INFORMATION
  Report Type: 
  Country: None (occurrence: None)
  Receive Date: 20110601
  Receipt Date: 20110526
  Transmission Date: 20111010
  Serious: Yes (Hospitalization)
  Sender: FDA-Public Use
  Company Number: PHHY2011GB45182

PATIENT
  Age: 75 Year
  Sex: Female

DRUGS (11)
  1. PREDNISOLONE [Suspect]
     Indication: RHEUMATOID ARTHRITIS
     Dosage: 5 MG, QD
     Route: 048
  2. FUROSEMIDE [Concomitant]
  3. METHOTREXATE [Suspect]
     Indication: RHEUMATOID ARTHRITIS
     Dosage: 7.5 MG, QW
     Route: 048
  4. ADCAL-D3 [Concomitant]
  5. ATENOLOL [Concomitant]
  6. OMEPRAZOLE [Concomitant]
  7. PENICILLAMINE [Suspect]
     Indication: RHEUMATOID ARTHRITIS
     Dosage: 250 MG, TID
     Route: 048
  8. ACETAMINOPHEN [Concomitant]
     Dosage: UNK
  9. ASPIRIN [Concomitant]
  10. FERROUS SULFATE TAB [Concomitant]
     Dosage: UNK
  11. SIMVASTATIN [Concomitant]
     Dosage: UNK

REACTIONS (1)
  - BONE MARROW FAILURE [None]
